FAERS Safety Report 25760944 (Version 1)
Quarter: 2025Q3

REPORT INFORMATION
  Report Type: Other
  Country: IR (occurrence: IR)
  Receive Date: 20250904
  Receipt Date: 20250904
  Transmission Date: 20251021
  Serious: Yes (Other)
  Sender: LYNE LABORATORIES
  Company Number: IR-Lyne Laboratories Inc.-2183817

PATIENT
  Age: 4 Year
  Sex: Female

DRUGS (1)
  1. TRIAMCINOLONE ACETONIDE [Suspect]
     Active Substance: TRIAMCINOLONE ACETONIDE
     Indication: Vitiligo

REACTIONS (2)
  - Embolia cutis medicamentosa [Recovered/Resolved]
  - Product use in unapproved indication [Unknown]
